FAERS Safety Report 14193105 (Version 1)
Quarter: 2017Q4

REPORT INFORMATION
  Report Type: Spontaneous
  Country: FR (occurrence: FR)
  Receive Date: 20171115
  Receipt Date: 20171115
  Transmission Date: 20180321
  Serious: Yes (Hospitalization)
  Sender: FDA-Public Use
  Company Number: FR-PFIZER INC-2017482864

PATIENT
  Age: 69 Year
  Sex: Male

DRUGS (18)
  1. IRINOTECAN HCL [Suspect]
     Active Substance: IRINOTECAN HYDROCHLORIDE
     Dosage: 280 MG, CYCLIC
     Route: 042
     Dates: start: 20170907
  2. OXALIPLATINE ACCORD [Suspect]
     Active Substance: OXALIPLATIN
     Indication: ADENOCARCINOMA PANCREAS
     Dosage: 135 MG, CYCLIC
     Route: 042
     Dates: start: 20170823
  3. OXALIPLATINE ACCORD [Suspect]
     Active Substance: OXALIPLATIN
     Dosage: 135 MG, CYCLIC
     Route: 042
     Dates: start: 20170907
  4. OXALIPLATINE ACCORD [Suspect]
     Active Substance: OXALIPLATIN
     Dosage: 135 MG, CYCLIC
     Route: 042
     Dates: start: 20170921
  5. FLUOROURACILE ACCORD [Suspect]
     Active Substance: FLUOROURACIL
     Dosage: 3800 MG + 600 MG, CYCLIC
     Route: 042
     Dates: start: 20170907
  6. ATROPINE. [Concomitant]
     Active Substance: ATROPINE
     Dosage: 0.25 MG, SINGLE
     Dates: start: 20170907, end: 20170907
  7. FLUOROURACILE ACCORD [Suspect]
     Active Substance: FLUOROURACIL
     Indication: ADENOCARCINOMA PANCREAS
     Dosage: 3800 MG + 600 MG, CYCLIC
     Route: 042
     Dates: start: 20170823
  8. ATROPINE. [Concomitant]
     Active Substance: ATROPINE
     Dosage: 0.25 MG, SINGLE
     Dates: start: 20170921, end: 20170921
  9. IRINOTECAN HCL [Suspect]
     Active Substance: IRINOTECAN HYDROCHLORIDE
     Dosage: 280 MG, CYCLIC
     Route: 042
     Dates: start: 20170921
  10. FLUOROURACILE ACCORD [Suspect]
     Active Substance: FLUOROURACIL
     Dosage: 3800 MG + 600 MG, CYCLIC
     Route: 042
     Dates: start: 20170921
  11. FOLINATE CALCIUM SANDOZ [Suspect]
     Active Substance: LEUCOVORIN CALCIUM
     Dosage: 612 MG, CYCLIC
     Route: 042
     Dates: start: 20170907
  12. FOLINATE CALCIUM SANDOZ [Suspect]
     Active Substance: LEUCOVORIN CALCIUM
     Dosage: 612 MG, CYCLIC
     Route: 042
     Dates: start: 20170921
  13. SOLU-MEDROL [Concomitant]
     Active Substance: METHYLPREDNISOLONE SODIUM SUCCINATE
     Dosage: 47 MG, SINGLE
     Dates: start: 20170921, end: 20170921
  14. SOLU-MEDROL [Concomitant]
     Active Substance: METHYLPREDNISOLONE SODIUM SUCCINATE
     Dosage: 47 MG, SINGLE
     Dates: start: 20170907, end: 20170907
  15. FOLINATE CALCIUM SANDOZ [Suspect]
     Active Substance: LEUCOVORIN CALCIUM
     Indication: ADENOCARCINOMA PANCREAS
     Dosage: 612 MG, CYCLIC
     Route: 042
     Dates: start: 20170823
  16. SOLU-MEDROL [Concomitant]
     Active Substance: METHYLPREDNISOLONE SODIUM SUCCINATE
     Dosage: 47 MG, SINGLE
     Dates: start: 20170823, end: 20170823
  17. IRINOTECAN HCL [Suspect]
     Active Substance: IRINOTECAN HYDROCHLORIDE
     Indication: ADENOCARCINOMA PANCREAS
     Dosage: 280 MG, CYCLIC
     Route: 042
     Dates: start: 20170823
  18. ATROPINE. [Concomitant]
     Active Substance: ATROPINE
     Dosage: 0.25 MG, SINGLE
     Dates: start: 20170823, end: 20170823

REACTIONS (4)
  - Febrile neutropenia [Recovered/Resolved]
  - Neutropenic colitis [Recovering/Resolving]
  - Septic shock [Recovering/Resolving]
  - Gastrointestinal toxicity [Recovering/Resolving]

NARRATIVE: CASE EVENT DATE: 20170929
